FAERS Safety Report 15755989 (Version 11)
Quarter: 2021Q3

REPORT INFORMATION
  Report Type: Report from Study
  Country: FR (occurrence: FR)
  Receive Date: 20181224
  Receipt Date: 20210814
  Transmission Date: 20211014
  Serious: Yes (Life-Threatening)
  Sender: FDA-Public Use
  Company Number: PHHO2018FR013256

PATIENT
  Age: 66 Year
  Sex: Male
  Weight: 77 kg

DRUGS (7)
  1. VANCOMYCINE [Concomitant]
     Active Substance: VANCOMYCIN
     Indication: APLASIA
     Dosage: 600 MG, Q6H
     Route: 065
     Dates: start: 20181206, end: 20181212
  2. CYTARABINE. [Suspect]
     Active Substance: CYTARABINE
     Indication: PRODUCT USED FOR UNKNOWN INDICATION
     Dosage: UNK
     Route: 042
     Dates: start: 20181120
  3. CGP 41251 / PKC 412A [Suspect]
     Active Substance: MIDOSTAURIN
     Indication: PRODUCT USED FOR UNKNOWN INDICATION
     Dosage: 50 MG, BID
     Route: 048
     Dates: start: 20181126, end: 20181213
  4. CYTARABINE. [Suspect]
     Active Substance: CYTARABINE
     Dosage: 200 MG/M2, QD
     Route: 042
     Dates: start: 20190108
  5. ZARZIO [Concomitant]
     Active Substance: FILGRASTIM
     Indication: APLASIA
     Dosage: 48 IU, QD
     Route: 042
     Dates: start: 20181126, end: 20181212
  6. CGP 41251 / PKC 412A [Suspect]
     Active Substance: MIDOSTAURIN
     Dosage: 50 MG, BID
     Route: 048
     Dates: start: 20190115
  7. TAZOCILLINE [Concomitant]
     Active Substance: PIPERACILLIN SODIUM\TAZOBACTAM SODIUM
     Indication: APLASIA
     Dosage: 4 G, Q6H
     Route: 042
     Dates: start: 20181204, end: 20181213

REACTIONS (3)
  - Bronchopulmonary aspergillosis [Recovered/Resolved]
  - Pneumocystis jirovecii pneumonia [Recovered/Resolved]
  - Acute respiratory distress syndrome [Recovered/Resolved]

NARRATIVE: CASE EVENT DATE: 20181211
